FAERS Safety Report 7897013-4 (Version None)
Quarter: 2011Q4

REPORT INFORMATION
  Report Type: 
  Country: None (occurrence: None)
  Receive Date: 20111107
  Receipt Date: 20111101
  Transmission Date: 20120403
  Serious: No
  Sender: FDA-Public Use
  Company Number: US-PFIZER INC-2011268197

PATIENT
  Sex: Female

DRUGS (42)
  1. SPIRIVA [Concomitant]
     Dosage: 18 UG, 1X/DAY
     Dates: start: 20110517
  2. TESSALON [Concomitant]
     Indication: COUGH
     Dosage: 100 MG, 3X/DAY
     Route: 048
     Dates: start: 20100208, end: 20100218
  3. TAMIFLU [Concomitant]
     Dosage: 75 MG, 2X/DAY
     Route: 048
     Dates: start: 20101101, end: 20110719
  4. OXYBUTYNIN CHLORIDE [Concomitant]
     Dosage: 10 MG, 1X/DAY
     Route: 048
     Dates: start: 20100601, end: 20110719
  5. AMOXICILLIN [Concomitant]
     Dosage: 875 MG, 2X/DAY
     Route: 048
     Dates: start: 20110118, end: 20110206
  6. ULTRACET [Concomitant]
     Dosage: 37.5-325 MG,1 TABLET EVERY SIX HOURS
     Dates: start: 20101123, end: 20110127
  7. LEVAQUIN [Concomitant]
     Dosage: 500 MG, 1X/DAY
     Route: 048
     Dates: start: 20100909, end: 20110103
  8. AMOXIL [Concomitant]
     Dosage: 875 MG, 2X/DAY
     Route: 048
     Dates: start: 20100601, end: 20100611
  9. AMBIEN [Concomitant]
     Dosage: 12.5 MG, 1 TABLET AT BEDTIME.
     Route: 048
     Dates: start: 20110517, end: 20110815
  10. ESTRACE [Concomitant]
     Dosage: 1 MG, 1X/DAY
     Route: 048
     Dates: start: 20110204
  11. DARVOCET-N 50 [Concomitant]
     Dosage: 100-625 MG, 4X/DAY
     Route: 048
     Dates: end: 20100715
  12. CIPROFLOXACIN [Concomitant]
     Dosage: 500 MG, 2X/DAY
     Route: 048
     Dates: start: 20110103, end: 20110110
  13. TESSALON [Concomitant]
     Dosage: 200 MG, 3X/DAY AS NEEDED
     Route: 048
     Dates: start: 20110107, end: 20110207
  14. XANAX [Concomitant]
     Dosage: 1 MG, 3X/DAY
     Route: 048
     Dates: end: 20110713
  15. CODEINE W/GUAIFENESIN [Concomitant]
     Indication: COUGH
     Dosage: 10-200 MG/5 ML 4X/DAY
     Route: 048
     Dates: start: 20100216, end: 20100623
  16. TESSALON [Concomitant]
     Indication: COUGH
     Dosage: 200 MG, 3X/DAY
     Route: 048
     Dates: start: 20100218, end: 20100228
  17. LEVAQUIN [Concomitant]
     Dosage: 750 MG, 1X/DAY
     Route: 048
     Dates: start: 20100216, end: 20100227
  18. CITALOPRAM [Concomitant]
     Dosage: 40 MG, 1X/DAY
     Route: 048
     Dates: start: 20100113
  19. SPIRIVA [Concomitant]
     Dosage: 18 UG, 1X/DAY 1 PUFF
     Route: 048
     Dates: start: 20110404, end: 20110504
  20. FACTIVE [Concomitant]
     Dosage: 320 MG, 1X/DAY
     Route: 048
     Dates: start: 20101020, end: 20110130
  21. DARVOCET-N 50 [Concomitant]
     Indication: PAIN
     Dosage: UNK, AS NEEDED
     Dates: start: 20100710, end: 20101119
  22. AMOXIL [Concomitant]
     Dosage: 875 MG, 2X/DAY
     Route: 048
     Dates: start: 20100301, end: 20100311
  23. AMBIEN [Concomitant]
     Dosage: 12.5 MG, AT BEDTIME AS NEEDED
     Route: 048
     Dates: end: 20110511
  24. VICOPROFEN [Concomitant]
     Dosage: 7.5-200 MG, 4X/DAY
     Route: 048
     Dates: start: 20101101
  25. CHERATUSSIN [Concomitant]
     Dosage: 10-100 MG/5 ML, 4X/DAY
     Route: 048
     Dates: start: 20100909, end: 20110719
  26. ATENOLOL [Concomitant]
     Dosage: 50 MG, 1X/DAY
     Route: 048
     Dates: start: 20100317, end: 20110719
  27. PREMARIN [Concomitant]
     Dosage: 0.625 MG, 1X/DAY
     Route: 048
     Dates: start: 20100913, end: 20110204
  28. PERCOCET [Concomitant]
     Dosage: 5-325 MG 1 TABLET EVERY SIX HOURS
     Route: 048
     Dates: start: 20101102, end: 20110127
  29. PERCOCET [Concomitant]
     Dosage: 7.5-325MG, 1 TABLET 4X/DAY
     Route: 048
     Dates: start: 20100623, end: 20100715
  30. ZIPSOR [Concomitant]
     Dosage: 25 MG, 4X/DAY
     Route: 048
     Dates: start: 20101122, end: 20101123
  31. ALPRAZOLAM [Concomitant]
     Dosage: 1 MG, 2X/DAY
     Route: 048
     Dates: start: 20100204, end: 20100206
  32. ALBUTEROL SULFATE [Concomitant]
     Dosage: 90 UG, 2 PUFF AS DIRECTED 4X/DAY
     Route: 055
     Dates: start: 20100222, end: 20100101
  33. ALBUTEROL SULFATE [Concomitant]
     Dosage: UNK, AS NEEDED
     Route: 055
     Dates: start: 20100101
  34. FACTIVE [Concomitant]
     Dosage: 320 MG, 1X/DAY
     Route: 048
     Dates: start: 20110106, end: 20110719
  35. MEDROL [Concomitant]
     Dosage: 4 MG, UNK
     Dates: start: 20100222, end: 20110719
  36. TESSALON [Concomitant]
     Dosage: 200 MG, 3X/DAY
     Route: 048
     Dates: start: 20100301, end: 20100321
  37. PREMARIN [Concomitant]
     Dosage: 0.625 MG, 1X/DAY
     Route: 048
     Dates: start: 20100226, end: 20110204
  38. DARVOCET-N 50 [Concomitant]
     Dosage: 100-625 MG, 1 TABLET 4X/DAY
     Route: 048
     Dates: start: 20101122, end: 20110110
  39. CELEBREX [Suspect]
     Dosage: UNK
     Dates: start: 20100202
  40. SPIRIVA [Concomitant]
     Dosage: INHALE ONE DOSE EVENRY DAY AS DIRECTED
     Dates: start: 20110425, end: 20110719
  41. AMOXICILLIN [Concomitant]
     Dosage: 875 MG, 2X/DAY
     Route: 048
     Dates: start: 20100208, end: 20100228
  42. NORCO [Concomitant]
     Dosage: 5-325 MG 1 TABLET EVERY EIGHT HOURS
     Route: 048
     Dates: start: 20100715, end: 20100720

REACTIONS (2)
  - SWELLING [None]
  - DRUG HYPERSENSITIVITY [None]
